FAERS Safety Report 13828690 (Version 1)
Quarter: 2017Q3

REPORT INFORMATION
  Report Type: Spontaneous
  Country: CN (occurrence: CN)
  Receive Date: 20170803
  Receipt Date: 20170803
  Transmission Date: 20171127
  Serious: Yes (Death, Hospitalization, Other)
  Sender: FDA-Public Use
  Company Number: CN-JNJFOC-20170720742

PATIENT

DRUGS (2)
  1. IBUPROFEN. [Suspect]
     Active Substance: IBUPROFEN
     Indication: PATENT DUCTUS ARTERIOSUS
     Dosage: STARTING AT 10MG/KG, FOLLOWED BY 5MG/KG AT THE SECOND AND THIRD DOSES
     Route: 048
  2. IBUPROFEN. [Suspect]
     Active Substance: IBUPROFEN
     Indication: PATENT DUCTUS ARTERIOSUS
     Dosage: STARTING AT 10MG/KG, FOLLOWED BY 5MG/KG AT THE SECOND AND THIRD DOSES
     Route: 048

REACTIONS (8)
  - Product use in unapproved indication [Unknown]
  - Death [Fatal]
  - Gastrointestinal haemorrhage [Unknown]
  - Drug ineffective for unapproved indication [Unknown]
  - Therapeutic response unexpected [Unknown]
  - Off label use [Unknown]
  - Necrotising enterocolitis neonatal [Unknown]
  - Feeding intolerance [Unknown]
